FAERS Safety Report 9762813 (Version 1)
Quarter: 2013Q4

REPORT INFORMATION
  Report Type: Spontaneous
  Country: US (occurrence: US)
  Receive Date: 20131216
  Receipt Date: 20131216
  Transmission Date: 20140711
  Serious: No
  Sender: FDA-Public Use
  Company Number: US-B.I. PHARMACEUTICALS,INC./RIDGEFIELD-2013-BI-40444BP

PATIENT
  Age: 61 Year
  Sex: Female
  Weight: 82 kg

DRUGS (4)
  1. SPIRIVA [Suspect]
     Indication: ASTHMA
     Dosage: 18 MCG
     Route: 055
     Dates: start: 201309
  2. ALBUTEROL 0.083% [Concomitant]
     Indication: ASTHMA
     Dosage: 5 ML
     Route: 055
  3. QVAR [Concomitant]
     Indication: ASTHMA
     Dosage: 80 MCG
     Route: 055
  4. VENTOLIN [Concomitant]
     Indication: ASTHMA
     Route: 055

REACTIONS (2)
  - Dyspnoea exertional [Not Recovered/Not Resolved]
  - Off label use [Unknown]
